FAERS Safety Report 21340283 (Version 2)
Quarter: 2025Q1

REPORT INFORMATION
  Report Type: Report from Study
  Country: CA (occurrence: CA)
  Receive Date: 20220916
  Receipt Date: 20250228
  Transmission Date: 20250409
  Serious: Yes (Other)
  Sender: CELLTRION
  Company Number: CA-CELLTRION INC.-2022CA012173

PATIENT

DRUGS (21)
  1. INFLIXIMAB-DYYB [Suspect]
     Active Substance: INFLIXIMAB-DYYB
     Indication: Rheumatoid arthritis
     Route: 058
     Dates: start: 20220723
  2. INFLIXIMAB-DYYB [Suspect]
     Active Substance: INFLIXIMAB-DYYB
     Dosage: 120 MG/ML 2 WEEKS
     Route: 058
     Dates: start: 20220823
  3. INFLIXIMAB-DYYB [Suspect]
     Active Substance: INFLIXIMAB-DYYB
     Dosage: 120 MG, Q2WEEKS
     Route: 058
     Dates: start: 2022
  4. INFLIXIMAB-DYYB [Suspect]
     Active Substance: INFLIXIMAB-DYYB
     Dosage: 120 MILLIGRAM PER MILLILITRE, Q2WEEKS
     Route: 058
     Dates: start: 20240918
  5. METFORMIN [Concomitant]
     Active Substance: METFORMIN HYDROCHLORIDE
  6. BASAGLAR [Concomitant]
     Active Substance: INSULIN GLARGINE
  7. SPIRONOLACTONE [Concomitant]
     Active Substance: SPIRONOLACTONE
  8. CANDESARTAN [Concomitant]
     Active Substance: CANDESARTAN
  9. TRAZODONE [Concomitant]
     Active Substance: TRAZODONE HYDROCHLORIDE
  10. ROSUVASTATIN [Concomitant]
     Active Substance: ROSUVASTATIN
  11. LINACLOTIDE [Concomitant]
     Active Substance: LINACLOTIDE
  12. OZEMPIC [Concomitant]
     Active Substance: SEMAGLUTIDE
     Dosage: 137MG WEEKLY
  13. EMTRIX [Concomitant]
     Indication: Migraine
  14. BENADRYL [Concomitant]
     Active Substance: DIPHENHYDRAMINE HYDROCHLORIDE
     Indication: Hypersensitivity
  15. HYDROMORPHONE [Concomitant]
     Active Substance: HYDROMORPHONE
  16. FOLIC ACID [Concomitant]
     Active Substance: FOLIC ACID
  17. FISH OIL\OMEGA-3 FATTY ACIDS [Concomitant]
     Active Substance: FISH OIL\OMEGA-3 FATTY ACIDS
  18. VITAMIN D NOS [Concomitant]
     Active Substance: CHOLECALCIFEROL\ERGOCALCIFEROL
  19. MAGNESIUM [Concomitant]
     Active Substance: MAGNESIUM
  20. LACTIC ACID;PROPYLENE GLYCOL;UREA [Concomitant]
     Indication: Migraine
  21. SEMAGLUTIDE [Concomitant]
     Active Substance: SEMAGLUTIDE
     Dosage: 137.0 MILLIGRAM, 1 EVERY 1 WEEKS

REACTIONS (4)
  - Diverticulitis [Recovered/Resolved]
  - SARS-CoV-2 test positive [Recovered/Resolved]
  - Off label use [Unknown]
  - Intentional dose omission [Unknown]

NARRATIVE: CASE EVENT DATE: 20221118
